FAERS Safety Report 12774210 (Version 1)
Quarter: 2016Q3

REPORT INFORMATION
  Report Type: Spontaneous
  Country: US (occurrence: US)
  Receive Date: 20160923
  Receipt Date: 20160923
  Transmission Date: 20161109
  Serious: No
  Sender: FDA-Public Use
  Company Number: US-PFIZER INC-2016360719

PATIENT
  Age: 83 Year
  Sex: Female
  Weight: 64.85 kg

DRUGS (7)
  1. LYRICA [Suspect]
     Active Substance: PREGABALIN
     Indication: POLYNEUROPATHY
     Dosage: 150 MG, 3X/DAY ( 1 CAPSULE 3 TIMES A DAY)
     Route: 048
  2. LYRICA [Suspect]
     Active Substance: PREGABALIN
     Indication: BACK PAIN
     Dosage: 100 MG, UNK
  3. ROPINIROLE. [Concomitant]
     Active Substance: ROPINIROLE
     Dosage: 2 MG, UNK
  4. LYRICA [Suspect]
     Active Substance: PREGABALIN
     Indication: LIMB DISCOMFORT
  5. PLAVIX [Concomitant]
     Active Substance: CLOPIDOGREL BISULFATE
     Dosage: 40 MG, UNK
  6. LYRICA [Suspect]
     Active Substance: PREGABALIN
     Indication: NEUROPATHY PERIPHERAL
  7. HYDROCODONE [Concomitant]
     Active Substance: HYDROCODONE
     Dosage: UNK (10/325)

REACTIONS (4)
  - Pain [Recovering/Resolving]
  - Drug ineffective [Unknown]
  - Nausea [Recovered/Resolved]
  - Hot flush [Recovering/Resolving]

NARRATIVE: CASE EVENT DATE: 201608
